FAERS Safety Report 24152217 (Version 1)
Quarter: 2024Q3

REPORT INFORMATION
  Report Type: Spontaneous
  Country: CN (occurrence: None)
  Receive Date: 20240730
  Receipt Date: 20240730
  Transmission Date: 20241017
  Serious: Yes (Other)
  Sender: ASTRAZENECA
  Company Number: 2024A169452

PATIENT
  Sex: Female

DRUGS (2)
  1. SODIUM ZIRCONIUM CYCLOSILICATE [Suspect]
     Active Substance: SODIUM ZIRCONIUM CYCLOSILICATE
     Indication: Hyperkalaemia
     Route: 048
  2. INSULIN NOS/GLUCOSE/POTASSIUM [Concomitant]
     Indication: Blood potassium increased

REACTIONS (1)
  - Supraventricular tachycardia [Recovering/Resolving]
